FAERS Safety Report 4279318-1 (Version None)
Quarter: 2004Q1

REPORT INFORMATION
  Report Type: 
  Country: None (occurrence: None)
  Receive Date: 20040123
  Receipt Date: 20040112
  Transmission Date: 20041129
  Serious: Yes (Other)
  Sender: FDA-Public Use
  Company Number: ZANA001124

PATIENT
  Age: 2 Year

DRUGS (1)
  1. ZANAFLEX [Suspect]
     Indication: DRUG USE FOR UNKNOWN INDICATION
     Dosage: 16 MG ORAL
     Route: 048

REACTIONS (2)
  - BRADYCARDIA [None]
  - OVERDOSE [None]
